FAERS Safety Report 7341673-3 (Version None)
Quarter: 2011Q1

REPORT INFORMATION
  Report Type: 
  Country: None (occurrence: None)
  Receive Date: 20110309
  Receipt Date: 20110303
  Transmission Date: 20110831
  Serious: No
  Sender: FDA-Public Use
  Company Number: US-PFIZER INC-2011047313

PATIENT
  Sex: Female
  Weight: 89 kg

DRUGS (7)
  1. HYDROCODONE [Concomitant]
     Dosage: 500 MG, UNK
  2. PREMARIN [Suspect]
     Indication: VULVOVAGINAL PRURITUS
     Dosage: UNK
     Route: 067
     Dates: start: 20110201, end: 20110201
  3. OMEPRAZOLE [Concomitant]
     Dosage: 40 MG, UNK
  4. METFORMIN [Concomitant]
     Dosage: 500 MG, 2X/DAY
  5. GLIPIZIDE [Concomitant]
     Dosage: 5 MG, DAILY
  6. ACETYLSALICYLIC ACID [Concomitant]
     Dosage: UNK
  7. HYDROCHLOROTHIAZIDE [Concomitant]
     Dosage: 25 MG, DAILY

REACTIONS (1)
  - DRUG INEFFECTIVE [None]
